FAERS Safety Report 7559824-4 (Version None)
Quarter: 2011Q2

REPORT INFORMATION
  Report Type: 
  Country: None (occurrence: None)
  Receive Date: 20110617
  Receipt Date: 20110617
  Transmission Date: 20111010
  Serious: Yes (Life-Threatening)
  Sender: FDA-Public Use
  Company Number: None

PATIENT
  Sex: Male
  Weight: 72.5755 kg

DRUGS (1)
  1. CITALOPRAM HYDROBROMIDE [Suspect]
     Indication: ANXIETY
     Dosage: 40 MG 1/DAY PO
     Route: 048
     Dates: start: 20110218, end: 20110423

REACTIONS (3)
  - UNEVALUABLE EVENT [None]
  - SUICIDAL IDEATION [None]
  - FEELING ABNORMAL [None]
